FAERS Safety Report 5336094-9 (Version None)
Quarter: 2007Q2

REPORT INFORMATION
  Report Type: 
  Country: None (occurrence: None)
  Receive Date: 20070308
  Receipt Date: 20061011
  Transmission Date: 20071010
  Serious: Yes (Other)
  Sender: FDA-Public Use
  Company Number: 06H-163-0310810-00

PATIENT
  Sex: Female

DRUGS (2)
  1. FENTANYL CITRATE [Suspect]
     Indication: PAIN
     Dosage: 1 MILLIGRAM/MILLILITERS, EPIDURAL
     Route: 008
     Dates: start: 20060921, end: 20060921
  2. ROPAVICAINE 0.2% (ROPIVACAINE) [Suspect]
     Indication: PAIN
     Dosage: EPIDURAL
     Route: 008
     Dates: start: 20060921, end: 20060921

REACTIONS (2)
  - DIZZINESS [None]
  - HYPOTENSION [None]
